FAERS Safety Report 6720901-9 (Version None)
Quarter: 2010Q2

REPORT INFORMATION
  Report Type: 
  Country: None (occurrence: None)
  Receive Date: 20100512
  Receipt Date: 20100428
  Transmission Date: 20101027
  Serious: Yes (Other)
  Sender: FDA-Public Use
  Company Number: US-JNJFOC-20100503028

PATIENT

DRUGS (2)
  1. IBUPROFEN [Suspect]
     Indication: HEADACHE
  2. ASPIRIN [Interacting]
     Indication: CARDIOVASCULAR EVENT PROPHYLAXIS

REACTIONS (3)
  - CHEST PAIN [None]
  - DRUG INTERACTION [None]
  - ISCHAEMIC CARDIOMYOPATHY [None]
